FAERS Safety Report 18241473 (Version 1)
Quarter: 2020Q3

REPORT INFORMATION
  Report Type: Spontaneous
  Country: TR (occurrence: TR)
  Receive Date: 20200908
  Receipt Date: 20200908
  Transmission Date: 20201103
  Serious: Yes (Other)
  Sender: FDA-Public Use
  Company Number: TR-LUPIN PHARMACEUTICALS INC.-2020-05594

PATIENT
  Age: 5 Decade
  Sex: Female

DRUGS (2)
  1. DICLOFENAC [Suspect]
     Active Substance: DICLOFENAC
     Indication: HEADACHE
     Dosage: UNK (SELF ADMINISTRATION THROUGH SKIN POPPING) (FORMULATION: INJECTION)
     Route: 065
  2. DICLOFENAC [Suspect]
     Active Substance: DICLOFENAC
     Indication: ANGER

REACTIONS (4)
  - Drug abuse [Unknown]
  - Major depression [Unknown]
  - Scar [Unknown]
  - Skin ulcer [Unknown]
